FAERS Safety Report 16598523 (Version 2)
Quarter: 2019Q4

REPORT INFORMATION
  Report Type: Spontaneous
  Country: CN (occurrence: CN)
  Receive Date: 20190719
  Receipt Date: 20191125
  Transmission Date: 20200122
  Serious: Yes (Hospitalization)
  Sender: FDA-Public Use
  Company Number: CN-ASTRAZENECA-2019SF01718

PATIENT
  Age: 66 Year
  Sex: Male
  Weight: 48 kg

DRUGS (3)
  1. SUCRALFATE. [Suspect]
     Active Substance: SUCRALFATE
     Indication: GASTRIC ULCER
     Dosage: 5ML 0.5DAY
     Route: 048
     Dates: start: 20190704, end: 20190709
  2. SUCRALFATE. [Suspect]
     Active Substance: SUCRALFATE
     Indication: GASTRIC ULCER
     Route: 048
  3. ESOMEPRAZOLE MAGNESIUM. [Suspect]
     Active Substance: ESOMEPRAZOLE MAGNESIUM
     Indication: REFLUX GASTRITIS
     Route: 048
     Dates: start: 20190704, end: 20190709

REACTIONS (1)
  - Drug eruption [Recovering/Resolving]

NARRATIVE: CASE EVENT DATE: 20190704
